FAERS Safety Report 23822649 (Version 1)
Quarter: 2024Q2

REPORT INFORMATION
  Report Type: Spontaneous
  Country: US (occurrence: None)
  Receive Date: 20240506
  Receipt Date: 20240506
  Transmission Date: 20240717
  Serious: Yes (Death, Hospitalization, Other)
  Sender: FDA-Public Use
  Company Number: 2024A106379

PATIENT
  Age: 80 Year
  Sex: Male

DRUGS (2)
  1. SEROQUEL [Suspect]
     Active Substance: QUETIAPINE FUMARATE
     Route: 048
  2. REXULTI [Suspect]
     Active Substance: BREXPIPRAZOLE
     Indication: Major depression

REACTIONS (4)
  - Death [Fatal]
  - Mental impairment [Unknown]
  - Foaming at mouth [Unknown]
  - Drooling [Unknown]

NARRATIVE: CASE EVENT DATE: 20240408
